FAERS Safety Report 5766882-6 (Version None)
Quarter: 2008Q2

REPORT INFORMATION
  Report Type: 
  Country: None (occurrence: None)
  Receive Date: 20080612
  Receipt Date: 20080529
  Transmission Date: 20081010
  Serious: Yes (Hospitalization)
  Sender: FDA-Public Use
  Company Number: DE-ELI_LILLY_AND_COMPANY-DE200803001751

PATIENT
  Sex: Female
  Weight: 64 kg

DRUGS (4)
  1. FORTEO [Suspect]
     Indication: OSTEOPOROSIS
     Dosage: 20 UG, UNKNOWN
     Route: 058
     Dates: start: 20070801, end: 20080115
  2. CALCIUM [Concomitant]
     Dosage: UNK, UNKNOWN
     Route: 065
  3. VITAMIN D [Concomitant]
     Dosage: UNK, UNKNOWN
     Route: 065
  4. DEKRISTOL [Concomitant]
     Indication: VITAMIN D DEFICIENCY
     Dosage: 1300 IE, UNK
     Route: 048
     Dates: start: 20070801

REACTIONS (1)
  - THYROID FUNCTION TEST ABNORMAL [None]
